FAERS Safety Report 20688431 (Version 1)
Quarter: 2022Q2

REPORT INFORMATION
  Report Type: Spontaneous
  Country: GB (occurrence: GB)
  Receive Date: 20220408
  Receipt Date: 20220408
  Transmission Date: 20220721
  Serious: Yes (Other)
  Sender: FDA-Public Use
  Company Number: GB-MHRA-MED-202204011451035350-YKMBZ

PATIENT
  Age: 65 Year
  Sex: Female

DRUGS (18)
  1. ALENDRONATE SODIUM [Suspect]
     Active Substance: ALENDRONATE SODIUM
     Indication: Osteopenia
     Dosage: 70 MILLIGRAM, QW (ADDITIONAL INFO: ROUTE:)
     Dates: start: 20121002, end: 20220328
  2. ADCAL [CALCIUM CARBONATE;COLECALCIFEROL] [Concomitant]
     Dosage: UNK (ADDITIONAL INFO: ROUTE)
  3. AMLODIPINE [Concomitant]
     Active Substance: AMLODIPINE BESYLATE
     Dosage: UNK (ADDITIONAL INFO: ROUTE)
  4. ASPIRIN [Concomitant]
     Active Substance: ASPIRIN
     Dosage: UNK (ADDITIONAL INFO: ROUTE)
  5. ATORVASTATIN [Concomitant]
     Active Substance: ATORVASTATIN
     Indication: Dyslipidaemia
     Dosage: UNK (ADDITIONAL INFO: ROUTE)
  6. CODEINE [Concomitant]
     Active Substance: CODEINE
     Dosage: UNK (ADDITIONAL INFO: ROUTE)
  7. FUROSEMIDE [Concomitant]
     Active Substance: FUROSEMIDE
     Dosage: UNK (ADDITIONAL INFO: ROUTE)
  8. HYPROMELLOSES [Concomitant]
     Active Substance: HYPROMELLOSES
     Dosage: UNK (ADDITIONAL INFO: ROUTE)
  9. LANSOPRAZOLE [Concomitant]
     Active Substance: LANSOPRAZOLE
     Dosage: UNK (ADDITIONAL INFO: ROUTE)
  10. LATANOPROST [Concomitant]
     Active Substance: LATANOPROST
     Dosage: UNK (ADDITIONAL INFO: ROUTE)
  11. LEVOTHYROXINE [Concomitant]
     Active Substance: LEVOTHYROXINE
     Dosage: UNK (ADDITIONAL INFO: ROUTE)
  12. MOMETASONE [Concomitant]
     Active Substance: MOMETASONE
     Dosage: UNK (ADDITIONAL INFO: ROUTE)
  13. ACETAMINOPHEN [Concomitant]
     Active Substance: ACETAMINOPHEN
     Dosage: UNK (ADDITIONAL INFO: ROUTE)
  14. QUININE [Concomitant]
     Active Substance: QUININE
     Dosage: UNK (ADDITIONAL INFO: ROUTE)
  15. RAMIPRIL [Concomitant]
     Active Substance: RAMIPRIL
     Dosage: UNK (ADDITIONAL INFO: ROUTE)
  16. SODIUM CHLORIDE [Concomitant]
     Active Substance: SODIUM CHLORIDE
     Dosage: UNK (ADDITIONAL INFO: ROUTE)
  17. BECLOMETHASONE DIPROPIONATE\FORMOTEROL FUMARATE\GLYCOPYRROLATE [Concomitant]
     Active Substance: BECLOMETHASONE DIPROPIONATE\FORMOTEROL FUMARATE\GLYCOPYRROLATE
     Dosage: UNK (ADDITIONAL INFO: ROUTE)
  18. VOLTAROL EMULGEL [Concomitant]
     Dosage: UNK (ADDITIONAL INFO: ROUTE)

REACTIONS (2)
  - Osteonecrosis [Not Recovered/Not Resolved]
  - Palate injury [Unknown]

NARRATIVE: CASE EVENT DATE: 20210701
